FAERS Safety Report 11954519 (Version 1)
Quarter: 2016Q1

REPORT INFORMATION
  Report Type: Report from Study
  Country: US (occurrence: US)
  Receive Date: 20160125
  Receipt Date: 20160125
  Transmission Date: 20160526
  Serious: No
  Sender: FDA-Public Use
  Company Number: US-ABBVIE-15K-163-1335194-00

PATIENT
  Age: 40 Year
  Sex: Female

DRUGS (2)
  1. HUMIRA [Suspect]
     Active Substance: ADALIMUMAB
     Indication: CROHN^S DISEASE
     Route: 065
     Dates: start: 2015, end: 20150216
  2. HUMIRA [Suspect]
     Active Substance: ADALIMUMAB
     Indication: COLITIS ULCERATIVE
     Route: 065
     Dates: start: 20141208, end: 201501

REACTIONS (15)
  - Alopecia [Unknown]
  - Lip discolouration [Recovered/Resolved]
  - Inflammation [Unknown]
  - Influenza [Unknown]
  - Cardiac failure congestive [Unknown]
  - Adverse drug reaction [Unknown]
  - Lip discolouration [Unknown]
  - Neuropathy peripheral [Not Recovered/Not Resolved]
  - Lip discolouration [Recovered/Resolved]
  - Peripheral coldness [Not Recovered/Not Resolved]
  - Arthralgia [Unknown]
  - Lip discolouration [Recovered/Resolved]
  - Pulmonary pain [Unknown]
  - Nail discolouration [Not Recovered/Not Resolved]
  - Dyspnoea [Unknown]

NARRATIVE: CASE EVENT DATE: 201412
